FAERS Safety Report 18650527 (Version 1)
Quarter: 2020Q4

REPORT INFORMATION
  Report Type: Report from Study
  Country: AT (occurrence: AT)
  Receive Date: 20201222
  Receipt Date: 20201222
  Transmission Date: 20210114
  Serious: Yes (Hospitalization, Other)
  Sender: FDA-Public Use
  Company Number: AT-JNJFOC-A-CH2018-170699

PATIENT
  Age: 79 Year
  Sex: Female
  Weight: 60 kg

DRUGS (16)
  1. UPTRAVI [Suspect]
     Active Substance: SELEXIPAG
     Dosage: 400 MCG, QD
     Route: 048
     Dates: start: 20180222, end: 20180322
  2. UPTRAVI [Suspect]
     Active Substance: SELEXIPAG
     Dosage: 400 MCG, BID
     Route: 048
     Dates: start: 20180502, end: 20180718
  3. LASIX [Concomitant]
     Active Substance: FUROSEMIDE
     Indication: OEDEMA
     Dosage: UNK
     Route: 048
  4. OLEOVIT [Concomitant]
     Indication: OSTEOPOROSIS
     Dosage: UNK
     Route: 048
  5. CONCOR [Concomitant]
     Active Substance: BISOPROLOL FUMARATE
     Indication: HYPERTENSION
     Dosage: UNK
     Route: 048
     Dates: start: 20180323
  6. SILDENAFIL. [Concomitant]
     Active Substance: SILDENAFIL
     Indication: PULMONARY ARTERIAL HYPERTENSION
     Dosage: 60 MG, QD
     Route: 048
     Dates: start: 20180222
  7. TRACLEER [Suspect]
     Active Substance: BOSENTAN
     Indication: PULMONARY ARTERIAL HYPERTENSION
     Dosage: 250 MG, QD
     Route: 048
     Dates: start: 2017
  8. MOTILIUM [Concomitant]
     Active Substance: DOMPERIDONE
     Indication: NAUSEA
     Dosage: UNK
     Route: 048
  9. AMLODIPIN GENERICON [Concomitant]
     Indication: HYPERTENSION
     Dosage: UNK
     Route: 048
  10. VITAMINS WITH MINERALS [Concomitant]
     Active Substance: MINERALS\VITAMINS
     Indication: OSTEOPOROSIS
     Dosage: UNK
     Route: 048
  11. SULTANOL [Concomitant]
     Active Substance: ALBUTEROL SULFATE
     Indication: ASTHMA
     Dosage: UNK
     Route: 055
  12. THYREX [Concomitant]
     Active Substance: LEVOTHYROXINE SODIUM
     Indication: THYROID HORMONE REPLACEMENT THERAPY
     Dosage: UNK
     Route: 048
  13. ELOZELL [Concomitant]
     Indication: MINERAL DEFICIENCY
     Dosage: UNK
     Route: 042
     Dates: start: 20180323, end: 20180323
  14. UPTRAVI [Suspect]
     Active Substance: SELEXIPAG
     Indication: PULMONARY ARTERIAL HYPERTENSION
     Dosage: 800 MCG, QD
     Route: 048
     Dates: start: 20180323
  15. STAYVEER [Suspect]
     Active Substance: BOSENTAN
     Indication: PULMONARY ARTERIAL HYPERTENSION
     Dosage: 250 MG, QD
     Route: 048
     Dates: start: 2017
  16. BONVIVA [Concomitant]
     Active Substance: IBANDRONATE SODIUM
     Indication: OSTEOPOROSIS
     Dosage: UNK
     Route: 042

REACTIONS (14)
  - Atrial fibrillation [Recovered/Resolved]
  - Condition aggravated [Recovered/Resolved]
  - Disease progression [Recovered/Resolved]
  - Mineral deficiency [Recovered/Resolved]
  - General physical health deterioration [Unknown]
  - Pulmonary arterial hypertension [Recovered/Resolved]
  - Tachyarrhythmia [Unknown]
  - Dyspnoea [Unknown]
  - Cardiac failure [Recovered/Resolved]
  - Oedema [Unknown]
  - Cardioversion [Unknown]
  - N-terminal prohormone brain natriuretic peptide abnormal [Recovered/Resolved]
  - Drug ineffective [Unknown]
  - Hypertension [Unknown]

NARRATIVE: CASE EVENT DATE: 20180323
